FAERS Safety Report 10390240 (Version 1)
Quarter: 2014Q3

REPORT INFORMATION
  Report Type: Spontaneous
  Country: IE (occurrence: IE)
  Receive Date: 20140818
  Receipt Date: 20140818
  Transmission Date: 20150326
  Serious: Yes (Death)
  Sender: FDA-Public Use
  Company Number: IE-AMGEN-IRLSP2014061619

PATIENT
  Age: 77 Year
  Sex: Female

DRUGS (13)
  1. PANTOFLUX                          /01263204/ [Concomitant]
  2. CALCICHEW [Concomitant]
     Active Substance: CALCIUM CARBONATE
  3. ONE ALPHA [Concomitant]
     Active Substance: ALFACALCIDOL
  4. MIRTAZAPINE. [Concomitant]
     Active Substance: MIRTAZAPINE
  5. ISTOLDE [Concomitant]
  6. MADOPAR [Concomitant]
     Active Substance: BENSERAZIDE HYDROCHLORIDE\LEVODOPA
  7. TIPURIC [Concomitant]
  8. LEXAPRO [Concomitant]
     Active Substance: ESCITALOPRAM OXALATE
  9. ZOPICLONE [Concomitant]
     Active Substance: ZOPICLONE
  10. ARANESP [Suspect]
     Active Substance: DARBEPOETIN ALFA
     Indication: PRODUCT USED FOR UNKNOWN INDICATION
     Dosage: 20 MUG/ML, Q2WK
     Route: 058
     Dates: start: 20131127
  11. NEBIVOLOL [Concomitant]
     Active Substance: NEBIVOLOL
  12. CLOPIDOGREL [Concomitant]
     Active Substance: CLOPIDOGREL BISULFATE
  13. BURINEX [Concomitant]
     Active Substance: BUMETANIDE

REACTIONS (1)
  - Death [Fatal]
